FAERS Safety Report 6844782-8 (Version None)
Quarter: 2010Q3

REPORT INFORMATION
  Report Type: 
  Country: None (occurrence: None)
  Receive Date: 20100715
  Receipt Date: 20100709
  Transmission Date: 20110219
  Serious: Yes (Death, Hospitalization)
  Sender: FDA-Public Use
  Company Number: FR-WYE-G06084110

PATIENT
  Sex: Male
  Weight: 78 kg

DRUGS (2)
  1. TORISEL [Suspect]
     Indication: MANTLE CELL LYMPHOMA
     Dosage: 175 MG (FREQUENCY UNSPECIFIED)
     Route: 042
     Dates: start: 20100401, end: 20100401
  2. TORISEL [Suspect]
     Dosage: 100 MG (FREQUENCY UNSPECIFIED)
     Route: 042
     Dates: start: 20100401, end: 20100408

REACTIONS (12)
  - ACUTE PRERENAL FAILURE [None]
  - ASTHENIA [None]
  - DEATH [None]
  - DEHYDRATION [None]
  - GENERAL PHYSICAL HEALTH DETERIORATION [None]
  - HAEMOGLOBIN DECREASED [None]
  - MUCOSAL INFLAMMATION [None]
  - NEUTROPHIL COUNT DECREASED [None]
  - PURPURA [None]
  - THROMBOCYTOPENIA [None]
  - WEIGHT DECREASED [None]
  - WHITE BLOOD CELL COUNT DECREASED [None]
